FAERS Safety Report 9234382 (Version 1)
Quarter: 2013Q2

REPORT INFORMATION
  Report Type: Spontaneous
  Country: RU (occurrence: RU)
  Receive Date: 20130416
  Receipt Date: 20130416
  Transmission Date: 20140414
  Serious: Yes (Life-Threatening, Other)
  Sender: FDA-Public Use
  Company Number: RU-GLAXOSMITHKLINE-B0884057A

PATIENT
  Age: 74 Year
  Sex: Female
  Weight: 58 kg

DRUGS (4)
  1. BENLYSTA [Suspect]
     Indication: SYSTEMIC LUPUS ERYTHEMATOSUS
     Dosage: 520MG PER DAY
     Route: 042
     Dates: start: 20130123, end: 20130220
  2. METHYLPREDNISOLONE [Concomitant]
     Indication: SYSTEMIC LUPUS ERYTHEMATOSUS
     Dosage: 12MG PER DAY
     Route: 048
     Dates: start: 2011
  3. MYCOPHENOLIC ACID [Concomitant]
     Indication: SYSTEMIC LUPUS ERYTHEMATOSUS
     Dosage: 720MG PER DAY
     Route: 048
     Dates: start: 2011, end: 20130323
  4. IBANDRONIC ACID [Concomitant]
     Indication: OSTEOPOROSIS
     Dosage: 150MG PER DAY
     Route: 048
     Dates: start: 2011, end: 201302

REACTIONS (3)
  - Pneumonia [Recovering/Resolving]
  - Back pain [Recovering/Resolving]
  - Pyrexia [Recovering/Resolving]
